FAERS Safety Report 25406197 (Version 1)
Quarter: 2025Q2

REPORT INFORMATION
  Report Type: Report from Study
  Country: US (occurrence: US)
  Receive Date: 20250606
  Receipt Date: 20250606
  Transmission Date: 20250717
  Serious: No
  Sender: MALLINCKRODT
  Company Number: US-MALLINCKRODT-MNK202503474

PATIENT
  Sex: Female
  Weight: 198 kg

DRUGS (1)
  1. CORTICOTROPIN [Suspect]
     Active Substance: CORTICOTROPIN
     Indication: Chronic cutaneous lupus erythematosus
     Dosage: 80 UNITS
     Route: 058
     Dates: start: 20240913

REACTIONS (2)
  - Memory impairment [Unknown]
  - Inappropriate schedule of product administration [Unknown]
